FAERS Safety Report 5533157-X (Version None)
Quarter: 2007Q4

REPORT INFORMATION
  Report Type: 
  Country: None (occurrence: None)
  Receive Date: 20071129
  Receipt Date: 20071129
  Transmission Date: 20080405
  Serious: Yes (Death)
  Sender: FDA-Public Use
  Company Number: None

PATIENT
  Sex: Male
  Weight: 98.4306 kg

DRUGS (1)
  1. ARICEPT [Suspect]
     Indication: AMNESIA
     Dosage: 10 MG, 1 PILL/DAY ORAL
     Route: 048

REACTIONS (3)
  - LOSS OF CONSCIOUSNESS [None]
  - MUSCLE SPASMS [None]
  - PULMONARY EMBOLISM [None]
